FAERS Safety Report 15249652 (Version 1)
Quarter: 2018Q3

REPORT INFORMATION
  Report Type: Spontaneous
  Country: CN (occurrence: CN)
  Receive Date: 20180807
  Receipt Date: 20180807
  Transmission Date: 20181010
  Serious: Yes (Hospitalization)
  Sender: FDA-Public Use
  Company Number: CN-ASTRAZENECA-2018SE99697

PATIENT
  Sex: Male
  Weight: 80 kg

DRUGS (1)
  1. TICAGRELOR. [Suspect]
     Active Substance: TICAGRELOR
     Indication: CORONARY ARTERIAL STENT INSERTION
     Route: 048
     Dates: start: 20180506

REACTIONS (4)
  - Dyspnoea [Recovering/Resolving]
  - Hyperuricosuria [Recovering/Resolving]
  - Purpura [Recovering/Resolving]
  - Creatinine urine increased [Recovering/Resolving]
